FAERS Safety Report 22311864 (Version 2)
Quarter: 2023Q2

REPORT INFORMATION
  Report Type: Report from Study
  Country: CH (occurrence: CH)
  Receive Date: 20230512
  Receipt Date: 20230524
  Transmission Date: 20230722
  Serious: Yes (Hospitalization, Other)
  Sender: FDA-Public Use
  Company Number: CH-ABBVIE-4758874

PATIENT
  Age: 55 Year
  Sex: Male
  Weight: 119 kg

DRUGS (10)
  1. HUMIRA [Suspect]
     Active Substance: ADALIMUMAB
     Indication: Psoriasis
     Route: 058
     Dates: start: 20170201
  2. CANDESARTAN [Concomitant]
     Active Substance: CANDESARTAN
     Indication: Product used for unknown indication
     Dosage: 8/12.5 MG
  3. Tamsulosin T-Mepha [Concomitant]
     Indication: Product used for unknown indication
  4. BISOPROLOL [Concomitant]
     Active Substance: BISOPROLOL
     Indication: Product used for unknown indication
  5. ASPIRIN [Concomitant]
     Active Substance: ASPIRIN
     Indication: Product used for unknown indication
  6. CEFTRIAXONE [Concomitant]
     Active Substance: CEFTRIAXONE
     Indication: Antibiotic therapy
     Route: 042
     Dates: start: 20230422, end: 20230424
  7. PANTOPRAZOLE SODIUM [Concomitant]
     Active Substance: PANTOPRAZOLE SODIUM
     Indication: Product used for unknown indication
  8. Novalgin [Concomitant]
     Indication: Product used for unknown indication
     Dosage: TIME INTERVAL: AS NECESSARY
  9. AMOXICILLIN\CLAVULANATE POTASSIUM [Concomitant]
     Active Substance: AMOXICILLIN\CLAVULANATE POTASSIUM
     Indication: Product used for unknown indication
     Dosage: TIME INTERVAL: 0.33333333 DAYS
     Route: 048
     Dates: end: 20230504
  10. DAFALGAN [Concomitant]
     Active Substance: ACETAMINOPHEN
     Indication: Product used for unknown indication
     Dosage: TIME INTERVAL: AS NECESSARY

REACTIONS (16)
  - General physical health deterioration [Recovered/Resolved]
  - Dysuria [Recovered/Resolved]
  - Hyponatraemia [Recovered/Resolved]
  - Inguinal hernia [Unknown]
  - White blood cell count increased [Recovered/Resolved]
  - Obesity [Unknown]
  - Platelet count decreased [Recovered/Resolved]
  - Red blood cell count decreased [Unknown]
  - Multi-organ disorder [Unknown]
  - Escherichia sepsis [Recovered/Resolved]
  - Atrial fibrillation [Unknown]
  - Escherichia infection [Recovered/Resolved]
  - Haematocrit decreased [Unknown]
  - Thrombocytopenia [Recovered/Resolved]
  - Mean cell haemoglobin concentration increased [Recovered/Resolved]
  - C-reactive protein increased [Recovered/Resolved]

NARRATIVE: CASE EVENT DATE: 20200101
